FAERS Safety Report 7657152-X (Version None)
Quarter: 2011Q3

REPORT INFORMATION
  Report Type: 
  Country: None (occurrence: None)
  Receive Date: 20110804
  Receipt Date: 20110607
  Transmission Date: 20111222
  Serious: No
  Sender: FDA-Public Use
  Company Number: US-GLAXOSMITHKLINE-A0930610A

PATIENT
  Age: 94 Year
  Sex: Male

DRUGS (7)
  1. ALLOPURINOL [Concomitant]
  2. ADVAIR DISKUS 100/50 [Suspect]
     Indication: WHEEZING
     Dosage: 1PUFF PER DAY
     Route: 055
     Dates: start: 20110524
  3. SIMVASTATIN [Concomitant]
  4. FINASTERIDE [Concomitant]
  5. LEXAPRO [Concomitant]
  6. FLUDROCORTISONE ACETATE [Concomitant]
  7. OMEPRAZOLE [Concomitant]

REACTIONS (6)
  - DISCOMFORT [None]
  - FEELING ABNORMAL [None]
  - MIDDLE INSOMNIA [None]
  - FEAR [None]
  - DRY MOUTH [None]
  - ANGER [None]
